FAERS Safety Report 25998661 (Version 2)
Quarter: 2025Q4

REPORT INFORMATION
  Report Type: Report from Study
  Country: US (occurrence: US)
  Receive Date: 20251105
  Receipt Date: 20251110
  Transmission Date: 20260117
  Serious: Yes (Other)
  Sender: BAUSCH AND LOMB
  Company Number: US-BAUSCH-BH-2025-019742

PATIENT
  Age: 54 Year
  Sex: Male

DRUGS (1)
  1. XIFAXAN [Suspect]
     Active Substance: RIFAXIMIN
     Indication: Product used for unknown indication
     Route: 048

REACTIONS (3)
  - Adverse drug reaction [Unknown]
  - Therapy interrupted [Unknown]
  - Product distribution issue [Unknown]
